FAERS Safety Report 11542686 (Version 1)
Quarter: 2015Q3

REPORT INFORMATION
  Report Type: Spontaneous
  Country: US (occurrence: US)
  Receive Date: 20150923
  Receipt Date: 20150923
  Transmission Date: 20151125
  Serious: Yes (Hospitalization, Other)
  Sender: FDA-Public Use
  Company Number: US-ASTELLAS-2015US034103

PATIENT
  Sex: Male

DRUGS (2)
  1. PROGRAF [Suspect]
     Active Substance: TACROLIMUS\TACROLIMUS ANHYDROUS
     Indication: LIVER TRANSPLANT
     Dosage: 0.05 MG, UNKNOWN FREQ.
     Route: 065
  2. PROGRAF [Suspect]
     Active Substance: TACROLIMUS\TACROLIMUS ANHYDROUS
     Route: 065

REACTIONS (11)
  - Infection [Unknown]
  - Encephalopathy [Unknown]
  - Rash [Unknown]
  - Mood swings [Unknown]
  - Diabetes mellitus [Unknown]
  - Drug dispensing error [Unknown]
  - Malaise [Unknown]
  - Swelling face [Unknown]
  - Lymphoma [Unknown]
  - Overdose [Unknown]
  - Mental retardation [Not Recovered/Not Resolved]
